FAERS Safety Report 9440301 (Version 2)
Quarter: 2013Q4

REPORT INFORMATION
  Report Type: Spontaneous
  Country: FR (occurrence: FR)
  Receive Date: 20130805
  Receipt Date: 20131118
  Transmission Date: 20140711
  Serious: Yes (Death, Hospitalization, Other)
  Sender: FDA-Public Use
  Company Number: FR-ELI_LILLY_AND_COMPANY-FR201307009391

PATIENT
  Age: 72 Year
  Sex: Female

DRUGS (8)
  1. CYMBALTA [Suspect]
     Indication: DEPRESSION
     Dosage: 30 MG, QD
     Route: 048
     Dates: start: 201210
  2. CYMBALTA [Suspect]
     Dosage: 60 MG, QD
     Route: 048
  3. CYMBALTA [Suspect]
     Dosage: 30 MG, QD
     Route: 048
  4. AFINITOR [Suspect]
     Indication: BREAST CANCER
     Dosage: 5 MG, QD
     Route: 048
     Dates: start: 20130518, end: 20130522
  5. AROMASINE [Suspect]
     Indication: BREAST CANCER
     Dosage: 25 MG, QD
     Route: 048
     Dates: start: 20120412, end: 20130522
  6. BISOPROLOL [Concomitant]
     Dosage: 5 MG, QD
     Dates: start: 2012
  7. OXYCONTIN [Concomitant]
     Dosage: 40 MG, QD
     Dates: start: 2012
  8. EUPANTOL [Concomitant]
     Dosage: 20 MG, QD
     Dates: start: 2012

REACTIONS (8)
  - Breast cancer metastatic [Fatal]
  - Hepatic encephalopathy [Fatal]
  - Blood phosphorus decreased [Not Recovered/Not Resolved]
  - Hepatic failure [Not Recovered/Not Resolved]
  - Disorientation [Not Recovered/Not Resolved]
  - Constipation [Not Recovered/Not Resolved]
  - Mouth ulceration [Not Recovered/Not Resolved]
  - Fall [Not Recovered/Not Resolved]
